FAERS Safety Report 5207321-3 (Version None)
Quarter: 2007Q1

REPORT INFORMATION
  Report Type: 
  Country: None (occurrence: None)
  Receive Date: 20070112
  Receipt Date: 20070103
  Transmission Date: 20070707
  Serious: Yes (Other)
  Sender: FDA-Public Use
  Company Number: PHNU2006DE02870

PATIENT
  Sex: Male

DRUGS (9)
  1. TEGRETOL [Suspect]
     Indication: CONVULSION PROPHYLAXIS
     Dosage: 800 MG/DAY
     Route: 048
     Dates: start: 20060515, end: 20060518
  2. TEGRETOL [Suspect]
     Dosage: REDUCED DOSAGE
     Route: 048
  3. KALETRA [Suspect]
     Indication: HIV INFECTION
     Dosage: 3-0-3 DF/DAY
     Route: 048
  4. L-POLAMIDON [Concomitant]
     Indication: DRUG WITHDRAWAL MAINTENANCE THERAPY
     Dosage: 2 MG/DAY
     Route: 048
     Dates: start: 19920101
  5. L-POLAMIDON [Concomitant]
     Dosage: 4 ML/DAY
     Route: 048
  6. DIAZEPAM [Concomitant]
     Indication: DRUG DEPENDENCE
     Dosage: 20 MG/DAY
     Route: 048
     Dates: start: 20060516, end: 20060518
  7. FLUNITRAZEPAM [Concomitant]
     Dosage: 4 MG/DAY
  8. FLUNITRAZEPAM [Concomitant]
     Route: 048
  9. TRUVADA [Suspect]

REACTIONS (13)
  - AGITATION [None]
  - ANTICONVULSANT DRUG LEVEL INCREASED [None]
  - ASTHENIA [None]
  - COORDINATION ABNORMAL [None]
  - DIZZINESS [None]
  - DRUG INTERACTION [None]
  - DRUG TOXICITY [None]
  - GAIT DISTURBANCE [None]
  - GENERAL PHYSICAL HEALTH DETERIORATION [None]
  - INSOMNIA [None]
  - NYSTAGMUS [None]
  - OVERDOSE [None]
  - STRESS [None]
